FAERS Safety Report 5788165-0 (Version None)
Quarter: 2008Q2

REPORT INFORMATION
  Report Type: 
  Country: None (occurrence: None)
  Receive Date: 20080625
  Receipt Date: 20080530
  Transmission Date: 20081010
  Serious: No
  Sender: FDA-Public Use
  Company Number: US-BOEHRINGER INGELHEIM GMBH, GERMANY-2008-BP-05769BP

PATIENT
  Sex: Male

DRUGS (17)
  1. FLOMAX [Suspect]
     Indication: BENIGN PROSTATIC HYPERPLASIA
     Route: 048
     Dates: start: 20080124, end: 20080331
  2. FLOMAX [Suspect]
     Indication: PROSTATOMEGALY
  3. COUMADIN [Concomitant]
  4. DIOVAN [Concomitant]
     Indication: HYPERTENSION
  5. CADUET [Concomitant]
  6. XALATAN [Concomitant]
  7. COSOPT [Concomitant]
  8. MULTIVITIAM [Concomitant]
  9. NORVASC [Concomitant]
  10. LIPITOR [Concomitant]
  11. VITAMIN B-12 [Concomitant]
  12. TYLENOL [Concomitant]
     Indication: ARTHRITIS
  13. AXIDE ANTI-ACID [Concomitant]
  14. NASACOR-AQ [Concomitant]
  15. EDEMA -SUPPORT STOCKINGS [Concomitant]
  16. NIASPAN [Concomitant]
  17. CHOLASTROL [Concomitant]

REACTIONS (10)
  - ARTHRALGIA [None]
  - FLUID RETENTION [None]
  - GOUT [None]
  - JOINT SWELLING [None]
  - OEDEMA PERIPHERAL [None]
  - RASH [None]
  - RASH ERYTHEMATOUS [None]
  - SKIN WARM [None]
  - SYNOVIAL CYST [None]
  - VASCULITIS [None]
